FAERS Safety Report 13790542 (Version 1)
Quarter: 2017Q3

REPORT INFORMATION
  Report Type: Report from Study
  Country: US (occurrence: US)
  Receive Date: 20170725
  Receipt Date: 20170725
  Transmission Date: 20171127
  Serious: Yes (Death, Hospitalization)
  Sender: FDA-Public Use
  Company Number: US-IPSEN BIOPHARMACEUTICALS, INC.-2017-02092

PATIENT
  Age: 67 Year
  Sex: Female
  Weight: 48 kg

DRUGS (14)
  1. IMODIUM [Concomitant]
     Active Substance: LOPERAMIDE HYDROCHLORIDE
  2. SINGULAIR [Concomitant]
     Active Substance: MONTELUKAST SODIUM
  3. OXYCODONE [Concomitant]
     Active Substance: OXYCODONE
  4. COMPAZINE [Concomitant]
     Active Substance: PROCHLORPERAZINE MALEATE
  5. ATIVAN [Concomitant]
     Active Substance: LORAZEPAM
  6. CALCIUM SUPPLEMENT [Concomitant]
     Active Substance: CALCIUM
  7. THERMOTAB [Concomitant]
  8. SOMATULINE DEPOT [Suspect]
     Active Substance: LANREOTIDE ACETATE
     Indication: CARCINOID SYNDROME
     Dosage: 120 MG
     Route: 058
     Dates: start: 20161110
  9. AFINITOR [Concomitant]
     Active Substance: EVEROLIMUS
  10. ZOFRAN [Concomitant]
     Active Substance: ONDANSETRON HYDROCHLORIDE
  11. MIRALAX [Concomitant]
     Active Substance: POLYETHYLENE GLYCOL 3350
  12. VITAMIN D3 [Concomitant]
     Active Substance: CHOLECALCIFEROL
  13. HYDROCODONE-ACETAMINOPHEN [Concomitant]
     Active Substance: ACETAMINOPHEN\HYDROCODONE
  14. METAMUCIL [Concomitant]
     Active Substance: PLANTAGO SEED

REACTIONS (8)
  - Malignant neoplasm progression [Fatal]
  - Hypothermia [Unknown]
  - Hypotension [Unknown]
  - Inappropriate schedule of drug administration [Unknown]
  - Leukopenia [Unknown]
  - Fatigue [Unknown]
  - Ascites [Unknown]
  - Asthenia [Unknown]

NARRATIVE: CASE EVENT DATE: 2017
